FAERS Safety Report 19584076 (Version 1)
Quarter: 2021Q3

REPORT INFORMATION
  Report Type: Spontaneous
  Country: DE (occurrence: DE)
  Receive Date: 20210720
  Receipt Date: 20210720
  Transmission Date: 20211014
  Serious: Yes (Hospitalization)
  Sender: FDA-Public Use
  Company Number: DE-MYLANLABS-2021M1042645

PATIENT
  Age: 79 Year
  Sex: Female
  Weight: 120 kg

DRUGS (24)
  1. HYDROCHLOROTHIAZID [Concomitant]
     Active Substance: HYDROCHLOROTHIAZIDE
     Dosage: 25 MILLIGRAM (25 MG,1?0?0?0)
     Route: 048
  2. RAMIPRIL. [Concomitant]
     Active Substance: RAMIPRIL
     Dosage: 2.5 MILLIGRAM, QD (2.5 MG,1?0?0?0)
     Route: 048
  3. IBEROGAST [Concomitant]
     Active Substance: HERBALS
     Dosage: UNK
     Route: 048
  4. DEKRISTOL [Concomitant]
     Active Substance: CHOLECALCIFEROL
     Dosage: UNK (20000 IU)
     Route: 048
  5. PANTOPRAZOLE [Concomitant]
     Active Substance: PANTOPRAZOLE
     Dosage: 40 MILLIGRAM (40 MG, 1?0?1?0)
     Route: 048
  6. L?THYROXINE                        /00068001/ [Concomitant]
     Active Substance: LEVOTHYROXINE
     Dosage: 50 MICROGRAM, QD (50 UG,1?0?0?0?)
     Route: 048
  7. ECURAL [Concomitant]
     Active Substance: MOMETASONE
     Dosage: UNK (1?0?1?0)
     Route: 062
  8. VOMEX A [Concomitant]
     Active Substance: DIMENHYDRINATE
     Dosage: UNK
     Route: 048
  9. APIDRA [Concomitant]
     Active Substance: INSULIN GLULISINE
     Dosage: UNK
     Route: 058
  10. NEBIVOLOL. [Concomitant]
     Active Substance: NEBIVOLOL
     Dosage: 5 MILLIGRAM, QD (5 MG.0?0?1?0)
     Route: 048
  11. QUENSYL [Suspect]
     Active Substance: HYDROXYCHLOROQUINE
     Indication: PRODUCT USED FOR UNKNOWN INDICATION
     Dosage: 200 MILLIGRAM, QD (200 MG,1?0?0?0)
     Route: 048
  12. FUROSEMIDUM                        /00032601/ [Concomitant]
     Active Substance: FUROSEMIDE SODIUM
     Dosage: 125 MILLIGRAM, BID, (125 MG, 1?1?0?0)
     Route: 048
  13. ASPIRIN. [Concomitant]
     Active Substance: ASPIRIN
     Dosage: 100 MILLIGRAM, QD (100 MG, 1?0?0?0)
     Route: 048
  14. SIMVASTATIN. [Concomitant]
     Active Substance: SIMVASTATIN
     Dosage: 20 MILLIGRAM, QD (20 MG.0?0?1?0)
     Route: 048
  15. NOVALGIN (METAMIZOLE SODIUM) [Concomitant]
     Active Substance: METAMIZOLE SODIUM
     Dosage: 500 MILLIGRAM, Q6H, (500 MG.1?1?1?1)
     Route: 048
  16. MAGNETRANS                         /07349401/ [Concomitant]
     Dosage: 150 MILLIGRAM
     Route: 048
  17. PREDNISOLONE. [Suspect]
     Active Substance: PREDNISOLONE
     Indication: PRODUCT USED FOR UNKNOWN INDICATION
     Dosage: 5 MILLIGRAM, QD (5 MG,1?0?0?0)
     Route: 048
  18. MOVICOL [Concomitant]
     Active Substance: POLYETHYLENE GLYCOL 3350\POTASSIUM CHLORIDE\SODIUM BICARBONATE\SODIUM CHLORIDE
     Dosage: UNK (13.125,0.35,0.18,0.05 G)
     Route: 048
  19. FENTANYL. [Concomitant]
     Active Substance: FENTANYL
     Dosage: 37.5 MICROGRAM, QD (37.5 UG, QD)
     Route: 062
  20. LYRICA [Concomitant]
     Active Substance: PREGABALIN
     Dosage: 25 MILLIGRAM, BID (25 MG,1?0?1?0)
     Route: 048
  21. PERENTEROL [Concomitant]
     Active Substance: SACCHAROMYCES CEREVISIAE
     Dosage: 250 MILLIGRAM
     Route: 048
  22. PIPAMPERONE [Concomitant]
     Active Substance: PIPAMPERONE
     Dosage: UNK
     Route: 048
  23. TOUJEO [Concomitant]
     Active Substance: INSULIN GLARGINE
     Dosage: UNK
     Route: 058
  24. ALLOPURINOL. [Concomitant]
     Active Substance: ALLOPURINOL
     Dosage: 100 MILLIGRAM, QD (100 MG,1?0?0?0)
     Route: 048

REACTIONS (7)
  - Dyspnoea [Unknown]
  - General physical health deterioration [Unknown]
  - Dysuria [Unknown]
  - Headache [Unknown]
  - Vomiting [Unknown]
  - Pyrexia [Unknown]
  - Chest pain [Unknown]
